FAERS Safety Report 5296173-1 (Version None)
Quarter: 2007Q2

REPORT INFORMATION
  Report Type: 
  Country: None (occurrence: None)
  Receive Date: 20070413
  Receipt Date: 20070410
  Transmission Date: 20071010
  Serious: Yes (Other)
  Sender: FDA-Public Use
  Company Number: US-GLAXOSMITHKLINE-A0625582A

PATIENT
  Sex: Female

DRUGS (4)
  1. BACTROBAN [Suspect]
     Indication: NASAL CONGESTION
     Route: 045
  2. BACTROBAN [Suspect]
     Indication: DRUG USE FOR UNKNOWN INDICATION
     Route: 045
  3. NO CONCURRENT MEDICATION [Concomitant]
  4. OMNICEF [Concomitant]

REACTIONS (4)
  - CLOSTRIDIAL INFECTION [None]
  - OVERDOSE [None]
  - PSEUDOMEMBRANOUS COLITIS [None]
  - WRONG TECHNIQUE IN DRUG USAGE PROCESS [None]
